FAERS Safety Report 10312412 (Version 1)
Quarter: 2014Q3

REPORT INFORMATION
  Report Type: Spontaneous
  Country: US (occurrence: US)
  Receive Date: 20140718
  Receipt Date: 20140718
  Transmission Date: 20150326
  Serious: No
  Sender: FDA-Public Use
  Company Number: US-BIOGENIDEC-2014BI066917

PATIENT
  Age: 59 Year
  Sex: Female

DRUGS (4)
  1. AMITRIPTYLINE [Concomitant]
     Active Substance: AMITRIPTYLINE
  2. TECFIDERA [Suspect]
     Active Substance: DIMETHYL FUMARATE
     Indication: MULTIPLE SCLEROSIS
     Route: 048
     Dates: start: 20140311
  3. GABAPENTIN. [Concomitant]
     Active Substance: GABAPENTIN
  4. BLACK COHOSH [Concomitant]
     Active Substance: BLACK COHOSH

REACTIONS (1)
  - Pneumonia [Unknown]
